FAERS Safety Report 24194191 (Version 1)
Quarter: 2024Q3

REPORT INFORMATION
  Report Type: Spontaneous
  Country: FR (occurrence: FR)
  Receive Date: 20240809
  Receipt Date: 20240809
  Transmission Date: 20241016
  Serious: Yes (Hospitalization)
  Sender: HIKMA
  Company Number: FR-HIKMA PHARMACEUTICALS USA INC.-FR-H14001-24-07395

PATIENT
  Age: 87 Year
  Sex: Male
  Weight: 69 kg

DRUGS (2)
  1. DOBUTAMINE [Interacting]
     Active Substance: DOBUTAMINE HYDROCHLORIDE
     Indication: Cardiac failure chronic
     Dosage: 5 MICROGRAM, QD
     Route: 042
     Dates: start: 20240701
  2. FUROSEMIDE [Interacting]
     Active Substance: FUROSEMIDE
     Indication: Wrong product administered
     Dosage: 500 MILLIGRAM, QD
     Route: 042
     Dates: start: 20240703, end: 20240703

REACTIONS (3)
  - Drug chemical incompatibility [Recovering/Resolving]
  - Infusion site inflammation [Recovering/Resolving]
  - Infusion site necrosis [Recovering/Resolving]

NARRATIVE: CASE EVENT DATE: 20240703
